FAERS Safety Report 19454945 (Version 1)
Quarter: 2021Q2

REPORT INFORMATION
  Report Type: Spontaneous
  Country: US (occurrence: US)
  Receive Date: 20210623
  Receipt Date: 20210623
  Transmission Date: 20210717
  Serious: Yes (Other)
  Sender: FDA-Public Use
  Company Number: US-DSJP-DSU-2021-118778

PATIENT
  Sex: Female

DRUGS (2)
  1. ENHERTU [Suspect]
     Active Substance: FAM-TRASTUZUMAB DERUXTECAN-NXKI
     Indication: HER2 POSITIVE BREAST CANCER
     Dosage: UNK
     Route: 042
     Dates: end: 2021
  2. ENHERTU [Suspect]
     Active Substance: FAM-TRASTUZUMAB DERUXTECAN-NXKI
     Indication: BREAST CANCER METASTATIC

REACTIONS (2)
  - Disease progression [Unknown]
  - Toxicity to various agents [Unknown]
